FAERS Safety Report 10256142 (Version 2)
Quarter: 2014Q2

REPORT INFORMATION
  Report Type: Spontaneous
  Country: CO (occurrence: CO)
  Receive Date: 20140624
  Receipt Date: 20140624
  Transmission Date: 20141212
  Serious: Yes (Other)
  Sender: FDA-Public Use
  Company Number: CO-VERTEX PHARMACEUTICALS INC-2014-002786

PATIENT
  Age: 59 Year
  Sex: Male
  Weight: 63 kg

DRUGS (5)
  1. INCIVO [Suspect]
     Indication: HEPATITIS C
     Dosage: 375 MG, UNK
     Route: 048
     Dates: start: 20140529, end: 201406
  2. INTERFERON [Concomitant]
     Indication: HEPATITIS C
     Dosage: DOSAGE FORM: AMPOULES
     Route: 058
     Dates: start: 20140529
  3. RIBAVIRIN [Concomitant]
     Indication: HEPATITIS C
     Dosage: 200 MG, UNK
     Route: 048
     Dates: start: 20140529
  4. RIBAVIRIN [Concomitant]
     Dosage: 200 MG, UNK
     Route: 048
  5. RIBAVIRIN [Concomitant]
     Dosage: 200 MG, UNK
     Route: 048

REACTIONS (7)
  - Groin abscess [Unknown]
  - Myalgia [Not Recovered/Not Resolved]
  - Decreased appetite [Not Recovered/Not Resolved]
  - Malaise [Not Recovered/Not Resolved]
  - Haemoglobin decreased [Not Recovered/Not Resolved]
  - Rash [Not Recovered/Not Resolved]
  - Nausea [Not Recovered/Not Resolved]
